FAERS Safety Report 4845196-2 (Version None)
Quarter: 2005Q4

REPORT INFORMATION
  Report Type: 
  Country: None (occurrence: None)
  Receive Date: 20051129
  Receipt Date: 20051111
  Transmission Date: 20060501
  Serious: Yes (Hospitalization)
  Sender: FDA-Public Use
  Company Number: USA0510109681

PATIENT
  Age: 88 Year
  Sex: Male
  Weight: 66.8 kg

DRUGS (4)
  1. CYMBALTA [Suspect]
     Indication: MAJOR DEPRESSION
     Dosage: 30 MG, DAILY (1/D)
     Dates: start: 20050918, end: 20050925
  2. ASPIRIN [Concomitant]
  3. COLACE (DOCUSATE SODIUM) [Concomitant]
  4. FOLIC ACID [Concomitant]

REACTIONS (19)
  - BLOOD BILIRUBIN INCREASED [None]
  - BLOOD GLUCOSE INCREASED [None]
  - BRAIN NATRIURETIC PEPTIDE INCREASED [None]
  - CERVICAL SPINAL STENOSIS [None]
  - DELUSION [None]
  - FIBRIN D DIMER INCREASED [None]
  - HAEMATOCRIT DECREASED [None]
  - HAEMOGLOBIN DECREASED [None]
  - MEAN PLATELET VOLUME INCREASED [None]
  - NEUTROPHIL COUNT INCREASED [None]
  - PLATELET COUNT DECREASED [None]
  - PROSTATIC SPECIFIC ANTIGEN INCREASED [None]
  - PSYCHOTIC DISORDER [None]
  - RED BLOOD CELL COUNT DECREASED [None]
  - SPINAL COLUMN STENOSIS [None]
  - SPINAL CORD COMPRESSION [None]
  - SPINAL OSTEOARTHRITIS [None]
  - THROMBOSIS [None]
  - URINE KETONE BODY PRESENT [None]
